FAERS Safety Report 9239224 (Version 1)
Quarter: 2013Q2

REPORT INFORMATION
  Report Type: Spontaneous
  Country: US (occurrence: US)
  Receive Date: 20130418
  Receipt Date: 20130418
  Transmission Date: 20140414
  Serious: Yes (Other)
  Sender: FDA-Public Use
  Company Number: US-SANOFI-AVENTIS-2013SA038889

PATIENT
  Age: 61 Year
  Sex: Male

DRUGS (3)
  1. RIFAMPICIN [Suspect]
     Indication: DISSEMINATED TUBERCULOSIS
     Route: 065
  2. ISONIAZID [Concomitant]
     Indication: DISSEMINATED TUBERCULOSIS
  3. ANTINEOPLASTIC AGENTS [Concomitant]

REACTIONS (7)
  - Nephritis allergic [Unknown]
  - Polyuria [Unknown]
  - Hypercalcaemia [Recovering/Resolving]
  - Asthenia [Recovering/Resolving]
  - Abdominal pain [Recovering/Resolving]
  - Renal failure acute [Unknown]
  - Blood creatinine increased [Recovering/Resolving]
